FAERS Safety Report 5589234-0 (Version None)
Quarter: 2008Q1

REPORT INFORMATION
  Report Type: 
  Country: None (occurrence: None)
  Receive Date: 20080114
  Receipt Date: 20080108
  Transmission Date: 20080703
  Serious: Yes (Other)
  Sender: FDA-Public Use
  Company Number: US-BAYER-200810754NA

PATIENT
  Age: 31 Year
  Sex: Female
  Weight: 59 kg

DRUGS (2)
  1. YAZ [Suspect]
     Indication: OVARIAN CYST
     Route: 048
     Dates: start: 20071101
  2. ZOLOFT [Concomitant]
     Indication: PANIC ATTACK
     Dates: start: 20050101

REACTIONS (2)
  - FEELING ABNORMAL [None]
  - PARANOIA [None]
